FAERS Safety Report 21264446 (Version 1)
Quarter: 2022Q3

REPORT INFORMATION
  Report Type: Spontaneous
  Country: US (occurrence: US)
  Receive Date: 20220829
  Receipt Date: 20220829
  Transmission Date: 20221027
  Serious: No
  Sender: FDA-Public Use
  Company Number: US-BRISTOL-MYERS SQUIBB COMPANY-2022-096013

PATIENT
  Age: 67 Year
  Sex: Female
  Weight: 88.45 kg

DRUGS (1)
  1. POMALYST [Suspect]
     Active Substance: POMALIDOMIDE
     Indication: Plasma cell myeloma
     Dosage: DOSE : UNAVAILABLE;     FREQ : ONCE A DAY (AT NIGHT) FOR 21 DAYS AND 7 DAYS OFF
     Route: 048

REACTIONS (4)
  - Bone pain [Unknown]
  - Fall [Unknown]
  - Arthralgia [Unknown]
  - Intentional product use issue [Unknown]
